FAERS Safety Report 8911168 (Version 1)
Quarter: 2012Q4

REPORT INFORMATION
  Report Type: 
  Country: US (occurrence: US)
  Receive Date: 20121116
  Receipt Date: 20121116
  Transmission Date: 20130627
  Serious: No
  Sender: FDA-Public Use
  Company Number: US-GLAXOSMITHKLINE-A0988643A

PATIENT
  Sex: Female
  Weight: 80.5 kg

DRUGS (6)
  1. VOTRIENT [Suspect]
     Dosage: 800MG per day
     Route: 048
  2. FENTANYL CITRATE [Concomitant]
  3. ZOFRAN [Concomitant]
  4. MORPHINE SULFATE [Concomitant]
  5. MIRALAX [Concomitant]
  6. COLACE [Concomitant]

REACTIONS (5)
  - Nausea [Unknown]
  - Vomiting [Unknown]
  - Constipation [Unknown]
  - Diarrhoea [Unknown]
  - Eyelid function disorder [Unknown]
